FAERS Safety Report 6299541-4 (Version None)
Quarter: 2009Q3

REPORT INFORMATION
  Report Type: 
  Country: None (occurrence: None)
  Receive Date: 20090803
  Receipt Date: 20090714
  Transmission Date: 20100115
  Serious: No
  Sender: FDA-Public Use
  Company Number: APP200900380

PATIENT
  Sex: Female

DRUGS (1)
  1. AMIODARONE HYDROCHLORIDE [Suspect]
     Indication: DRUG USE FOR UNKNOWN INDICATION
     Dosage: 25 ML, ONCE INTRAVENOUS BOLUS
     Route: 040
     Dates: start: 20090712, end: 20090712

REACTIONS (3)
  - ERYTHEMA [None]
  - HYPOTENSION [None]
  - RESPIRATORY ARREST [None]
